FAERS Safety Report 5208923-0 (Version None)
Quarter: 2007Q1

REPORT INFORMATION
  Report Type: 
  Country: None (occurrence: None)
  Receive Date: 20070116
  Receipt Date: 20070103
  Transmission Date: 20070707
  Serious: Yes (Hospitalization)
  Sender: FDA-Public Use
  Company Number: PHBS2007US00576

PATIENT
  Age: 38 Year
  Sex: Female

DRUGS (3)
  1. CAFERGOT [Suspect]
     Indication: MIGRAINE
     Route: 065
  2. NEURONTIN [Concomitant]
     Route: 065
  3. HEPARIN [Concomitant]
     Route: 042

REACTIONS (3)
  - ARTERIAL STENT INSERTION [None]
  - DRUG TOXICITY [None]
  - PERIPHERAL ARTERY DISSECTION [None]
